FAERS Safety Report 10048198 (Version 1)
Quarter: 2014Q1

REPORT INFORMATION
  Report Type: Report from Study
  Country: FR (occurrence: FR)
  Receive Date: 20140331
  Receipt Date: 20140331
  Transmission Date: 20141002
  Serious: Yes (Hospitalization)
  Sender: FDA-Public Use
  Company Number: FR-TEVA-472185ISR

PATIENT
  Age: 82 Year
  Sex: Male

DRUGS (1)
  1. EFFENTORA [Suspect]
     Indication: PRODUCT USED FOR UNKNOWN INDICATION
     Route: 002

REACTIONS (2)
  - Appendicitis [Recovered/Resolved]
  - Post procedural complication [Unknown]
